FAERS Safety Report 8110769-0 (Version None)
Quarter: 2012Q1

REPORT INFORMATION
  Report Type: 
  Country: None (occurrence: None)
  Receive Date: 20120203
  Receipt Date: 20111031
  Transmission Date: 20120608
  Serious: No
  Sender: FDA-Public Use
  Company Number: US-COVIDIEN/TYCO HEALTHCARE/MALLINCKRODT-T201103016

PATIENT

DRUGS (1)
  1. PROPOXYPHENE HCL AND ACETAMINOPHEN [Suspect]

REACTIONS (3)
  - SUPRAVENTRICULAR EXTRASYSTOLES [None]
  - VENTRICULAR EXTRASYSTOLES [None]
  - SINUS TACHYCARDIA [None]
